FAERS Safety Report 8929158 (Version 2)
Quarter: 2012Q4

REPORT INFORMATION
  Report Type: 
  Country: DE (occurrence: DE)
  Receive Date: 20121127
  Receipt Date: 20121228
  Transmission Date: 20130627
  Serious: Yes (Hospitalization, Other)
  Sender: FDA-Public Use
  Company Number: GXKR2012DE003576

PATIENT
  Age: 91 Year
  Sex: Female
  Weight: 70 kg

DRUGS (4)
  1. COTRIM 1A PHARMA [Suspect]
     Indication: URINARY TRACT INFECTION
     Dosage: 1 DF with 800 mg sulfamethoxazole and 160 mg trimethoprim, BID
     Route: 048
     Dates: start: 20121109, end: 20121113
  2. BISOPROLOL 1A PHARMA [Concomitant]
     Dosage: 2.5 mg, QD
     Route: 048
     Dates: start: 20081010
  3. ASS [Concomitant]
     Dosage: 100 mg, QD
     Route: 048
     Dates: start: 20100707
  4. RAMIPRIL 1A PHARMA [Concomitant]
     Dosage: UNK UKN, UNK
     Route: 048
     Dates: start: 20081010

REACTIONS (8)
  - Pharyngeal oedema [Not Recovered/Not Resolved]
  - Dysphagia [Not Recovered/Not Resolved]
  - Abdominal pain upper [Not Recovered/Not Resolved]
  - Gingivitis [Not Recovered/Not Resolved]
  - Pneumonia [Not Recovered/Not Resolved]
  - Decreased appetite [Not Recovered/Not Resolved]
  - Vomiting [Not Recovered/Not Resolved]
  - Diarrhoea [Not Recovered/Not Resolved]
